FAERS Safety Report 11307964 (Version 1)
Quarter: 2015Q3

REPORT INFORMATION
  Report Type: Spontaneous
  Country: CH (occurrence: CH)
  Receive Date: 20150724
  Receipt Date: 20150724
  Transmission Date: 20151125
  Serious: Yes (Hospitalization)
  Sender: FDA-Public Use
  Company Number: CH-ROCHE-1611831

PATIENT
  Age: 66 Year
  Sex: Female

DRUGS (11)
  1. KCL-RETARD ZYMA [Concomitant]
     Route: 065
  2. METHOTREXATE (METHOTREXATE SODIUM) [Suspect]
     Active Substance: METHOTREXATE SODIUM
     Indication: PRODUCT USED FOR UNKNOWN INDICATION
     Dosage: (500 MG/M2, ABSOLUTE: 750MG AS A BOLUS AND 3000 MG/M2, ABSOLUTE: 4950 MG)
     Route: 040
     Dates: start: 20150429, end: 20150526
  3. NEBILET [Concomitant]
     Active Substance: NEBIVOLOL
     Route: 065
  4. RITUXIMAB [Suspect]
     Active Substance: RITUXIMAB
     Indication: PRODUCT USED FOR UNKNOWN INDICATION
     Dosage: 1. ZYKLUS: 24.04.2015XX2. ZYKLUS: 22.05.2015
     Route: 065
     Dates: start: 20150424, end: 20150522
  5. ELTROXIN [Concomitant]
     Active Substance: LEVOTHYROXINE
     Route: 065
  6. CO-APROVEL [Concomitant]
     Active Substance: HYDROCHLOROTHIAZIDE\IRBESARTAN
     Route: 065
  7. ELIQUIS [Concomitant]
     Active Substance: APIXABAN
     Route: 065
  8. DILZEM RETARD [Concomitant]
     Active Substance: DILTIAZEM
     Dosage: REPORTED AS : DILZEM 240 UNO RETARD KAPSELN.
     Route: 065
  9. PANTOZOL (SWITZERLAND) [Concomitant]
     Active Substance: PANTOPRAZOLE SODIUM
     Route: 065
  10. BACTRIM [Suspect]
     Active Substance: SULFAMETHOXAZOLE\TRIMETHOPRIM
     Indication: PRODUCT USED FOR UNKNOWN INDICATION
     Route: 048
     Dates: start: 20150616
  11. CYTARABIN [Suspect]
     Active Substance: CYTARABINE
     Indication: PRODUCT USED FOR UNKNOWN INDICATION
     Dosage: 1. ZYKLUS: X29.04.2015: 2000 MG/M2 -}3300MG ABSOLUT D 2-3 2 MAL TGLXX2. ZYKLUS:X26.05.2015: S
     Route: 065
     Dates: start: 20150429, end: 20150526

REACTIONS (1)
  - Renal failure [Recovering/Resolving]

NARRATIVE: CASE EVENT DATE: 20150616
